FAERS Safety Report 14587253 (Version 1)
Quarter: 2018Q1

REPORT INFORMATION
  Report Type: Spontaneous
  Country: US (occurrence: US)
  Receive Date: 20180228
  Receipt Date: 20180228
  Transmission Date: 20180509
  Serious: No
  Sender: FDA-Public Use
  Company Number: None

PATIENT
  Age: 47 Year
  Sex: Female
  Weight: 85.5 kg

DRUGS (2)
  1. CONTRAVE [Suspect]
     Active Substance: BUPROPION HYDROCHLORIDE\NALTREXONE HYDROCHLORIDE
     Indication: WEIGHT DECREASED
     Dosage: ?          QUANTITY:120 TABLET(S);?
     Route: 048
     Dates: start: 20180221, end: 20180225
  2. MULTI VITAMIN [Concomitant]
     Active Substance: VITAMINS

REACTIONS (7)
  - Thinking abnormal [None]
  - Fatigue [None]
  - Decreased appetite [None]
  - Flat affect [None]
  - Depression [None]
  - Suicidal ideation [None]
  - Feeling abnormal [None]

NARRATIVE: CASE EVENT DATE: 20180225
